FAERS Safety Report 10077215 (Version 2)
Quarter: 2014Q2

REPORT INFORMATION
  Report Type: Spontaneous
  Country: US (occurrence: US)
  Receive Date: 20140414
  Receipt Date: 20140414
  Transmission Date: 20141212
  Serious: No
  Sender: FDA-Public Use
  Company Number: US-BANPHARM-20130972

PATIENT
  Age: 73 Year
  Sex: Female

DRUGS (2)
  1. ALEVE LIQUID GELS 220MG [Suspect]
     Indication: ARTHRITIS
     Dosage: 1 DF, QD (USUAL), 2 DF ON 04MAR2013
     Route: 048
     Dates: start: 20130226
  2. MULTIVITAMIN [Concomitant]

REACTIONS (1)
  - Somnolence [Recovered/Resolved]
